FAERS Safety Report 25537743 (Version 2)
Quarter: 2025Q3

REPORT INFORMATION
  Report Type: Spontaneous
  Country: EU (occurrence: EU)
  Receive Date: 20250710
  Receipt Date: 20250727
  Transmission Date: 20251021
  Serious: Yes (Other)
  Sender: TEVA
  Company Number: EU-TEVA-VS-3349012

PATIENT
  Age: 22 Year
  Sex: Female

DRUGS (2)
  1. CIPROFLOXACIN [Suspect]
     Active Substance: CIPROFLOXACIN
     Indication: Large intestine infection
     Route: 065
  2. ACYCLOVIR [Concomitant]
     Active Substance: ACYCLOVIR
     Indication: Herpes simplex
     Route: 048

REACTIONS (1)
  - Psychotic disorder [Recovering/Resolving]
